FAERS Safety Report 4525051-8 (Version None)
Quarter: 2004Q4

REPORT INFORMATION
  Report Type: 
  Country: None (occurrence: None)
  Receive Date: 20041117
  Receipt Date: 20031107
  Transmission Date: 20050328
  Serious: Yes (Other)
  Sender: FDA-Public Use
  Company Number: C2003-2978.01

PATIENT
  Age: 43 Year
  Sex: Male

DRUGS (4)
  1. CLOZAPINE [Suspect]
     Indication: SCHIZOAFFECTIVE DISORDER
     Dosage: 200MG Q AM AND 300MG Q HS, ORAL
     Route: 048
     Dates: start: 20030919, end: 20031029
  2. LORAZEPAM [Concomitant]
  3. QUETIAPINE FUMARATE [Concomitant]
  4. FLUPHENAZINE [Concomitant]

REACTIONS (3)
  - AGRANULOCYTOSIS [None]
  - LEUKOPENIA [None]
  - PYREXIA [None]
